FAERS Safety Report 8008954-1 (Version None)
Quarter: 2011Q4

REPORT INFORMATION
  Report Type: 
  Country: None (occurrence: None)
  Receive Date: 20111227
  Receipt Date: 20111213
  Transmission Date: 20120403
  Serious: Yes (Death, Hospitalization)
  Sender: FDA-Public Use
  Company Number: FR-SANOFI-AVENTIS-2011SA081377

PATIENT
  Age: 57 Year
  Sex: Male

DRUGS (1)
  1. TAXOTERE [Suspect]
     Route: 065
     Dates: start: 20100831, end: 20100831

REACTIONS (1)
  - FEBRILE BONE MARROW APLASIA [None]
